FAERS Safety Report 8658784 (Version 2)
Quarter: 2012Q4

REPORT INFORMATION
  Report Type: 
  Country: US (occurrence: US)
  Receive Date: 20120710
  Receipt Date: 20120919
  Transmission Date: 20130627
  Serious: No
  Sender: FDA-Public Use
  Company Number: US-ASTRAZENECA-2012SE43606

PATIENT
  Age: 62 Year
  Sex: Male

DRUGS (1)
  1. SYMBICORT PMDI [Suspect]
     Route: 055

REACTIONS (5)
  - Dyspnoea [Unknown]
  - Gastric ulcer [Unknown]
  - Mental disorder [Unknown]
  - Heart rate increased [Unknown]
  - Drug dose omission [Unknown]
